FAERS Safety Report 25158623 (Version 1)
Quarter: 2025Q2

REPORT INFORMATION
  Report Type: Spontaneous
  Country: US (occurrence: US)
  Receive Date: 20250404
  Receipt Date: 20250404
  Transmission Date: 20250717
  Serious: Yes (Death, Other)
  Sender: TEVA
  Company Number: US-TEVA-VS-3316837

PATIENT
  Age: 52 Year
  Sex: Male

DRUGS (5)
  1. VALSARTAN [Suspect]
     Active Substance: VALSARTAN
     Indication: Product used for unknown indication
     Route: 065
  2. SIMVASTATIN [Concomitant]
     Active Substance: SIMVASTATIN
     Indication: Blood cholesterol increased
     Route: 065
     Dates: start: 201407, end: 201703
  3. AMLODIPINE BESYLATE [Concomitant]
     Active Substance: AMLODIPINE BESYLATE
     Indication: Hypertension
     Route: 065
     Dates: start: 201410, end: 20141026
  4. Microcide [Concomitant]
     Indication: Diuretic therapy
     Route: 065
     Dates: start: 20161119, end: 20180708
  5. LIPITOR [Concomitant]
     Active Substance: ATORVASTATIN CALCIUM
     Indication: Blood cholesterol increased
     Route: 065

REACTIONS (4)
  - Pancreatic carcinoma stage IV [Fatal]
  - Hepatic neoplasm [Unknown]
  - Splenic neoplasm malignancy unspecified [Unknown]
  - Pulmonary haematoma [Unknown]

NARRATIVE: CASE EVENT DATE: 20200605
